FAERS Safety Report 4527190-4 (Version None)
Quarter: 2004Q4

REPORT INFORMATION
  Report Type: 
  Country: None (occurrence: None)
  Receive Date: 20041213
  Receipt Date: 20041129
  Transmission Date: 20050328
  Serious: Yes (Hospitalization)
  Sender: FDA-Public Use
  Company Number: CA-2004-035863

PATIENT
  Age: 46 Year
  Sex: Male

DRUGS (1)
  1. BETASERON [Suspect]
     Indication: MULTIPLE SCLEROSIS
     Dosage: 8 MIU, EVERY 2D, SUBCUTANEOUS
     Route: 058
     Dates: start: 20040828

REACTIONS (10)
  - ABDOMINAL PAIN [None]
  - CHILLS [None]
  - CONDITION AGGRAVATED [None]
  - DECREASED APPETITE [None]
  - FEELING ABNORMAL [None]
  - GALLBLADDER DISORDER [None]
  - HYPERHIDROSIS [None]
  - MULTIPLE SCLEROSIS [None]
  - NAUSEA [None]
  - VOMITING [None]
